FAERS Safety Report 8322577-6 (Version None)
Quarter: 2012Q2

REPORT INFORMATION
  Report Type: 
  Country: None (occurrence: None)
  Receive Date: 20120430
  Receipt Date: 20120418
  Transmission Date: 20120825
  Serious: Yes (Hospitalization)
  Sender: FDA-Public Use
  Company Number: IT-JNJFOC-20120409988

PATIENT
  Sex: Female

DRUGS (3)
  1. RISPERDAL [Suspect]
     Indication: ACUTE PSYCHOSIS
     Route: 048
     Dates: start: 20120217, end: 20120219
  2. EN [Suspect]
     Indication: ACUTE PSYCHOSIS
     Route: 048
     Dates: start: 20120217, end: 20120219
  3. HALOPERIDOL [Suspect]
     Indication: ACUTE PSYCHOSIS
     Route: 048
     Dates: start: 20120217, end: 20120219

REACTIONS (3)
  - DYSPHAGIA [None]
  - EXTRAPYRAMIDAL DISORDER [None]
  - SALIVARY HYPERSECRETION [None]
